FAERS Safety Report 7941302-1 (Version None)
Quarter: 2011Q4

REPORT INFORMATION
  Report Type: 
  Country: None (occurrence: None)
  Receive Date: 20111122
  Receipt Date: 20111111
  Transmission Date: 20120403
  Serious: Yes (Other)
  Sender: FDA-Public Use
  Company Number: 2011P1010246

PATIENT
  Age: 24 Year
  Sex: Female
  Weight: 52.1637 kg

DRUGS (5)
  1. SEASONIQUE [Concomitant]
  2. BENADRYL [Concomitant]
  3. DEXTROAMPHETAMINE SACCHARATE, SUFATE/AMPHETAMINE ASPARTATE, SULFATE [Suspect]
     Indication: NARCOLEPSY
     Dosage: 10 MG;BID;PO
     Route: 048
     Dates: start: 20111028
  4. ZYRTEC [Concomitant]
  5. PREDNISONE TAB [Concomitant]

REACTIONS (3)
  - WHEEZING [None]
  - URTICARIA [None]
  - REACTION TO DRUG EXCIPIENTS [None]
